FAERS Safety Report 6046134-X (Version None)
Quarter: 2009Q1

REPORT INFORMATION
  Report Type: 
  Country: None (occurrence: None)
  Receive Date: 20090121
  Receipt Date: 20090121
  Transmission Date: 20090719
  Serious: Yes (Hospitalization)
  Sender: FDA-Public Use
  Company Number: None

PATIENT
  Sex: Female
  Weight: 86.5 kg

DRUGS (5)
  1. CYCLOPHOSPHAMIDE [Suspect]
     Dosage: 1160 MG
  2. DOXORUBICIN HYDROCHLORIDE [Suspect]
     Dosage: 116 MG
  3. PRILOSEC [Concomitant]
  4. REGLAN [Concomitant]
  5. SYNTHROID [Concomitant]

REACTIONS (2)
  - HAEMOGLOBIN DECREASED [None]
  - LOBAR PNEUMONIA [None]
